FAERS Safety Report 13344024 (Version 1)
Quarter: 2017Q1

REPORT INFORMATION
  Report Type: Spontaneous
  Country: US (occurrence: US)
  Receive Date: 20170316
  Receipt Date: 20170316
  Transmission Date: 20170428
  Serious: Yes (Other)
  Sender: FDA-Public Use
  Company Number: US-BAUSCH-BL-2017-006803

PATIENT
  Age: 62 Year
  Sex: Male
  Weight: 100.79 kg

DRUGS (2)
  1. XIFAXAN [Suspect]
     Active Substance: RIFAXIMIN
     Indication: GASTRIC DISORDER
     Route: 048
     Dates: start: 20160404, end: 201604
  2. LASIX [Concomitant]
     Active Substance: FUROSEMIDE
     Indication: HYPERTENSION
     Route: 048

REACTIONS (7)
  - Off label use [Unknown]
  - Abdominal pain upper [Unknown]
  - Mood swings [Unknown]
  - International normalised ratio fluctuation [Unknown]
  - Fatigue [Unknown]
  - Headache [Unknown]
  - Hepatitis C [Unknown]

NARRATIVE: CASE EVENT DATE: 201604
